FAERS Safety Report 4824749-1 (Version None)
Quarter: 2005Q4

REPORT INFORMATION
  Report Type: 
  Country: None (occurrence: None)
  Receive Date: 20051108
  Receipt Date: 20051101
  Transmission Date: 20060501
  Serious: No
  Sender: FDA-Public Use
  Company Number: TAP2005Q01933

PATIENT
  Age: 67 Year
  Sex: Male

DRUGS (1)
  1. LUPRON DEPOT-4 [Suspect]
     Indication: PROSTATE CANCER
     Dosage: 30 MG, 1 IN 4 M
     Dates: start: 20050712

REACTIONS (2)
  - HOT FLUSH [None]
  - MALIGNANT MELANOMA [None]
